FAERS Safety Report 5020465-4 (Version None)
Quarter: 2006Q2

REPORT INFORMATION
  Report Type: 
  Country: None (occurrence: None)
  Receive Date: 20060602
  Receipt Date: 20060524
  Transmission Date: 20061013
  Serious: Yes (Hospitalization, Other)
  Sender: FDA-Public Use
  Company Number: HQWYE531724MAY06

PATIENT
  Age: 2 Year
  Sex: Male

DRUGS (3)
  1. ADVIL [Suspect]
     Indication: PYREXIA
     Dosage: ORAL
     Route: 048
     Dates: start: 20060318, end: 20060322
  2. MOTILIUM [Suspect]
     Indication: GASTROENTERITIS
     Dates: start: 20060318, end: 20060318
  3. ULTRA LEVURA [Suspect]
     Indication: GASTROENTERITIS
     Dates: start: 20060318, end: 20060318

REACTIONS (7)
  - ABDOMINAL PAIN [None]
  - DEHYDRATION [None]
  - HAEMATURIA [None]
  - HYPERKALAEMIA [None]
  - PERINEPHRIC EFFUSION [None]
  - RENAL FAILURE ACUTE [None]
  - RENAL TUBULAR DISORDER [None]
